FAERS Safety Report 7542244-6 (Version None)
Quarter: 2011Q2

REPORT INFORMATION
  Report Type: 
  Country: None (occurrence: None)
  Receive Date: 20110613
  Receipt Date: 20110531
  Transmission Date: 20111010
  Serious: Yes (Hospitalization)
  Sender: FDA-Public Use
  Company Number: CN-PFIZER INC-2011126178

PATIENT
  Age: 67 Year
  Sex: Female

DRUGS (4)
  1. DILTIAZEM [Concomitant]
  2. CORDARONE [Suspect]
     Dosage: 150 MG, 1X/DAY
     Route: 048
     Dates: start: 20050101
  3. CORDARONE [Suspect]
     Indication: ATRIAL FIBRILLATION
     Dosage: 150 MG, DAILY
     Route: 048
     Dates: start: 20101006, end: 20110520
  4. BETALOC [Concomitant]

REACTIONS (6)
  - EYE PAIN [None]
  - HEADACHE [None]
  - PHOTOPHOBIA [None]
  - TRI-IODOTHYRONINE DECREASED [None]
  - BLOOD THYROID STIMULATING HORMONE INCREASED [None]
  - THYROXINE DECREASED [None]
